FAERS Safety Report 5622964-0 (Version None)
Quarter: 2008Q1

REPORT INFORMATION
  Report Type: 
  Country: None (occurrence: None)
  Receive Date: 20080207
  Receipt Date: 20080207
  Transmission Date: 20080703
  Serious: Yes (Disabling, Other)
  Sender: FDA-Public Use
  Company Number: None

PATIENT
  Age: 84 Year
  Sex: Male
  Weight: 88.905 kg

DRUGS (1)
  1. CLARITIN-D [Suspect]
     Indication: NASOPHARYNGITIS
     Dosage: 1 PILL ONCE
     Dates: start: 20071209, end: 20071209

REACTIONS (2)
  - HALLUCINATION, VISUAL [None]
  - PHARMACEUTICAL PRODUCT COMPLAINT [None]
